FAERS Safety Report 25377463 (Version 1)
Quarter: 2025Q2

REPORT INFORMATION
  Report Type: Spontaneous
  Country: US (occurrence: US)
  Receive Date: 20250530
  Receipt Date: 20250530
  Transmission Date: 20250716
  Serious: No
  Sender: ROCHE
  Company Number: US-ROCHE-10000296773

PATIENT
  Age: 65 Year
  Sex: Female
  Weight: 59.87 kg

DRUGS (2)
  1. OCREVUS [Suspect]
     Active Substance: OCRELIZUMAB
     Indication: Relapsing-remitting multiple sclerosis
     Route: 042
     Dates: start: 202405
  2. INTERFERON [Concomitant]
     Active Substance: INTERFERON

REACTIONS (3)
  - CD19 lymphocytes decreased [Not Recovered/Not Resolved]
  - Mean cell haemoglobin increased [Not Recovered/Not Resolved]
  - B-lymphocyte count decreased [Not Recovered/Not Resolved]

NARRATIVE: CASE EVENT DATE: 20250429
